FAERS Safety Report 11821445 (Version 4)
Quarter: 2019Q4

REPORT INFORMATION
  Report Type: Spontaneous
  Country: US (occurrence: US)
  Receive Date: 20151210
  Receipt Date: 20191023
  Transmission Date: 20200122
  Serious: No
  Sender: FDA-Public Use
  Company Number: US-PFIZER INC-2015434027

PATIENT
  Age: 66 Year
  Sex: Female

DRUGS (2)
  1. PREMARIN [Suspect]
     Active Substance: ESTROGENS, CONJUGATED
     Indication: VULVOVAGINAL DRYNESS
     Dosage: UNK, WEEKLY (2-3 TIMES WEEKLY)
     Dates: start: 2005
  2. PREMARIN [Suspect]
     Active Substance: ESTROGENS, CONJUGATED
     Indication: VULVOVAGINAL DISCOMFORT
     Dosage: 1 G, AS NEEDED (INSERT 1 GM , VAGINALLY 3 TIMES PER WEEK, AT BED TIME)
     Route: 067

REACTIONS (3)
  - Laryngitis [Unknown]
  - Product use issue [Unknown]
  - Off label use [Unknown]
